FAERS Safety Report 12268794 (Version 1)
Quarter: 2016Q2

REPORT INFORMATION
  Report Type: Spontaneous
  Country: CN (occurrence: CN)
  Receive Date: 20160414
  Receipt Date: 20160414
  Transmission Date: 20160815
  Serious: Yes (Disabling)
  Sender: FDA-Public Use
  Company Number: CN-PFIZER INC-2016201188

PATIENT
  Age: 58 Year
  Sex: Male
  Weight: 58 kg

DRUGS (1)
  1. LIPITOR [Suspect]
     Active Substance: ATORVASTATIN CALCIUM
     Indication: HYPERLIPIDAEMIA
     Dosage: 20 UG, 1X/DAY
     Route: 048
     Dates: start: 20150326, end: 20151206

REACTIONS (3)
  - Arthralgia [Unknown]
  - Dry skin [Unknown]
  - Cyanosis [Unknown]

NARRATIVE: CASE EVENT DATE: 20150331
